FAERS Safety Report 10524735 (Version 1)
Quarter: 2014Q4

REPORT INFORMATION
  Report Type: Spontaneous
  Country: US (occurrence: US)
  Receive Date: 20141017
  Receipt Date: 20141017
  Transmission Date: 20150528
  Serious: No
  Sender: FDA-Public Use
  Company Number: US-ASTRAZENECA-2014SE75523

PATIENT
  Age: 24074 Day
  Sex: Male
  Weight: 86.2 kg

DRUGS (4)
  1. FLUTICONE [Concomitant]
     Route: 045
  2. AMLODIPINE [Concomitant]
     Active Substance: AMLODIPINE BESYLATE
     Indication: BLOOD PRESSURE ABNORMAL
     Route: 048
  3. PULMICORT FLEXHALER [Suspect]
     Active Substance: BUDESONIDE
     Indication: LUNG OPERATION
     Route: 055
     Dates: start: 20140925, end: 20141004
  4. ARCAPTA NEOHALER [Concomitant]
     Active Substance: INDACATEROL MALEATE
     Route: 055

REACTIONS (3)
  - Off label use [Unknown]
  - Intentional product misuse [Unknown]
  - Malaise [Unknown]

NARRATIVE: CASE EVENT DATE: 20141004
